FAERS Safety Report 7285222-7 (Version None)
Quarter: 2011Q1

REPORT INFORMATION
  Report Type: 
  Country: None (occurrence: None)
  Receive Date: 20110210
  Receipt Date: 20110205
  Transmission Date: 20110831
  Serious: Yes (Other)
  Sender: FDA-Public Use
  Company Number: US-PFIZER INC-2011026341

PATIENT
  Sex: Female

DRUGS (3)
  1. PEDIACARE [Concomitant]
     Dosage: UNK
  2. ROBITUSSIN [Suspect]
     Indication: NASOPHARYNGITIS
     Dosage: UNK
     Route: 048
     Dates: start: 20110204
  3. ROBITUSSIN [Suspect]
     Indication: COUGH

REACTIONS (1)
  - HALLUCINATION [None]
